FAERS Safety Report 15227384 (Version 1)
Quarter: 2018Q3

REPORT INFORMATION
  Report Type: Spontaneous
  Country: US (occurrence: US)
  Receive Date: 20180801
  Receipt Date: 20180801
  Transmission Date: 20181010
  Serious: No
  Sender: FDA-Public Use
  Company Number: US-MYLANLABS-2018M1051840

PATIENT
  Sex: Female

DRUGS (1)
  1. TIZANIDINE TABLETS, USP [Suspect]
     Active Substance: TIZANIDINE
     Indication: PAIN
     Dosage: 4 MG, UNK

REACTIONS (1)
  - Drug ineffective for unapproved indication [Not Recovered/Not Resolved]
